FAERS Safety Report 22107704 (Version 1)
Quarter: 2023Q1

REPORT INFORMATION
  Report Type: Spontaneous
  Country: CA (occurrence: CA)
  Receive Date: 20230317
  Receipt Date: 20230317
  Transmission Date: 20230418
  Serious: Yes (Other)
  Sender: FDA-Public Use
  Company Number: CA-AstraZeneca-2021A044892

PATIENT
  Sex: Male

DRUGS (7)
  1. ACLIDINIUM BROMIDE [Suspect]
     Active Substance: ACLIDINIUM BROMIDE
     Indication: Product used for unknown indication
     Dosage: UNK
  2. ACLIDINIUM BROMIDE [Suspect]
     Active Substance: ACLIDINIUM BROMIDE
     Indication: Chronic obstructive pulmonary disease
  3. ZENHALE [Suspect]
     Active Substance: FORMOTEROL FUMARATE\MOMETASONE FUROATE
     Indication: Product used for unknown indication
     Dosage: UNK
  4. PREDNISONE [Suspect]
     Active Substance: PREDNISONE
     Indication: Product used for unknown indication
     Dosage: UNK,(10-15MG/D)
     Dates: start: 2016
  5. ALBUTEROL SULFATE [Suspect]
     Active Substance: ALBUTEROL SULFATE
     Indication: Product used for unknown indication
     Dosage: UNK
  6. FLUTICASONE PROPIONATE [Suspect]
     Active Substance: FLUTICASONE PROPIONATE
     Indication: Asthma
     Dosage: UNK
  7. NUCALA [Concomitant]
     Active Substance: MEPOLIZUMAB
     Indication: Product used for unknown indication
     Dosage: UNK
     Route: 042
     Dates: start: 20200423

REACTIONS (8)
  - Asthma [Unknown]
  - Coronary artery disease [Unknown]
  - Diabetes mellitus [Unknown]
  - Dyspnoea [Unknown]
  - Inflammation [Unknown]
  - Loss of personal independence in daily activities [Unknown]
  - Wheezing [Unknown]
  - Therapeutic product effect incomplete [Unknown]
